FAERS Safety Report 7768497-7 (Version None)
Quarter: 2011Q3

REPORT INFORMATION
  Report Type: 
  Country: None (occurrence: None)
  Receive Date: 20110922
  Receipt Date: 20110204
  Transmission Date: 20111222
  Serious: No
  Sender: FDA-Public Use
  Company Number: US-ASTRAZENECA-2011SE01867

PATIENT
  Age: 58 Year
  Sex: Male
  Weight: 102.1 kg

DRUGS (3)
  1. SEROQUEL XR [Suspect]
     Indication: BIPOLAR DISORDER
     Route: 048
  2. SEROQUEL XR [Suspect]
     Indication: INSOMNIA
     Route: 048
  3. REMORAN [Concomitant]
     Indication: INSOMNIA

REACTIONS (5)
  - HEADACHE [None]
  - CONSTIPATION [None]
  - MIGRAINE [None]
  - SKIN IRRITATION [None]
  - DRUG DOSE OMISSION [None]
